FAERS Safety Report 8219283-5 (Version None)
Quarter: 2012Q1

REPORT INFORMATION
  Report Type: 
  Country: None (occurrence: None)
  Receive Date: 20120319
  Receipt Date: 20120313
  Transmission Date: 20120608
  Serious: Yes (Other)
  Sender: FDA-Public Use
  Company Number: GT-ABBOTT-12P-069-0914999-00

PATIENT
  Sex: Female

DRUGS (2)
  1. HUMIRA [Suspect]
     Indication: RHEUMATOID ARTHRITIS
     Route: 058
     Dates: start: 20100101
  2. METHOTREXATE [Interacting]
     Indication: RHEUMATOID ARTHRITIS

REACTIONS (2)
  - HEPATIC FIBROSIS [None]
  - DRUG INTERACTION [None]
